FAERS Safety Report 13313489 (Version 1)
Quarter: 2017Q1

REPORT INFORMATION
  Report Type: Spontaneous
  Country: DZ (occurrence: DZ)
  Receive Date: 20170309
  Receipt Date: 20170309
  Transmission Date: 20170428
  Serious: Yes (Hospitalization)
  Sender: FDA-Public Use
  Company Number: DZ-BAYER-2017-042836

PATIENT
  Age: 50 Year
  Sex: Female

DRUGS (1)
  1. STIVARGA [Suspect]
     Active Substance: REGORAFENIB
     Dosage: DAILY DOSE 160 MG

REACTIONS (6)
  - Hypovolaemic shock [None]
  - Hypotension [None]
  - Erythema [None]
  - Mucosal inflammation [None]
  - Asthenia [None]
  - Swelling face [None]
